FAERS Safety Report 7385471-3 (Version None)
Quarter: 2011Q1

REPORT INFORMATION
  Report Type: 
  Country: None (occurrence: None)
  Receive Date: 20110330
  Receipt Date: 20110104
  Transmission Date: 20110831
  Serious: Yes (Other)
  Sender: FDA-Public Use
  Company Number: US-AMGEN-USASP2009000013

PATIENT
  Sex: Female
  Weight: 111 kg

DRUGS (3)
  1. IMMUNE GLOBULIN NOS [Concomitant]
     Dosage: UNK
     Dates: start: 20090413, end: 20090423
  2. NPLATE [Suspect]
     Indication: IDIOPATHIC THROMBOCYTOPENIC PURPURA
     Dosage: 1 A?G/KG, UNK
     Dates: start: 20090422, end: 20090422
  3. RITUXIMAB [Concomitant]
     Dosage: UNK
     Dates: start: 20090404, end: 20090419

REACTIONS (1)
  - DRUG INEFFECTIVE [None]
